FAERS Safety Report 4321062-6 (Version None)
Quarter: 2004Q1

REPORT INFORMATION
  Report Type: 
  Country: None (occurrence: None)
  Receive Date: 20040312
  Receipt Date: 20040121
  Transmission Date: 20041129
  Serious: Yes (Hospitalization)
  Sender: FDA-Public Use
  Company Number: S04-USA-00313-01

PATIENT
  Age: 64 Year
  Sex: Male

DRUGS (7)
  1. LEXAPRO [Suspect]
     Indication: MAJOR DEPRESSION
     Dosage: 10 MG QD PO
     Route: 048
     Dates: start: 20031119, end: 20031210
  2. LEXAPRO [Suspect]
     Indication: MAJOR DEPRESSION
     Dosage: 15 MG QD PO
     Route: 048
     Dates: start: 20031211, end: 20031220
  3. LEXAPRO [Suspect]
     Indication: MAJOR DEPRESSION
     Dosage: 20 MG QD PO
     Route: 048
     Dates: start: 20031221, end: 20031226
  4. LEXAPRO [Suspect]
     Indication: MAJOR DEPRESSION
     Dosage: 30 MG QD PO
     Route: 048
     Dates: start: 20031227
  5. RISPERDAL [Concomitant]
  6. KLONOPIN [Concomitant]
  7. COUMADIN [Concomitant]

REACTIONS (2)
  - SOMNOLENCE [None]
  - SUICIDAL IDEATION [None]
